FAERS Safety Report 12598312 (Version 3)
Quarter: 2016Q4

REPORT INFORMATION
  Report Type: Spontaneous
  Country: DE (occurrence: DE)
  Receive Date: 20160727
  Receipt Date: 20161024
  Transmission Date: 20170207
  Serious: Yes (Other)
  Sender: FDA-Public Use
  Company Number: DE-JNJFOC-20160317423

PATIENT
  Age: 78 Year
  Sex: Male

DRUGS (3)
  1. DECORTIN H [Concomitant]
     Active Substance: PREDNISOLONE
     Indication: HORMONE-REFRACTORY PROSTATE CANCER
     Route: 065
  2. CORTISONE [Concomitant]
     Active Substance: CORTISONE\HYDROCORTISONE
     Route: 065
  3. ZYTIGA [Suspect]
     Active Substance: ABIRATERONE ACETATE
     Indication: HORMONE-REFRACTORY PROSTATE CANCER
     Dosage: 4 TABLETS OF EACH 250 MG IN TOTAL ITS 1000 MG.
     Route: 048
     Dates: start: 201405, end: 20160229

REACTIONS (3)
  - Prostate cancer [Unknown]
  - Atypical pneumonia [Recovering/Resolving]
  - Alveolitis allergic [Not Recovered/Not Resolved]

NARRATIVE: CASE EVENT DATE: 201509
